FAERS Safety Report 5586491-1 (Version None)
Quarter: 2007Q4

REPORT INFORMATION
  Report Type: 
  Country: None (occurrence: None)
  Receive Date: 20071205
  Receipt Date: 20070803
  Transmission Date: 20080405
  Serious: Yes (Other)
  Sender: FDA-Public Use
  Company Number: HQWYE406506AUG07

PATIENT
  Age: 43 Year
  Sex: Female
  Weight: 71.73 kg

DRUGS (2)
  1. EFFEXOR XR [Suspect]
     Indication: DEPRESSION
     Dosage: 37.5 MG FREQUENCY UNSPECIFIED
     Dates: start: 20070726, end: 20070729
  2. NASACORT (TRIAMCINOLONE ACETATE) [Concomitant]

REACTIONS (12)
  - DEPRESSION [None]
  - DIZZINESS [None]
  - DRY EYE [None]
  - DRY MOUTH [None]
  - FLATULENCE [None]
  - FLIGHT OF IDEAS [None]
  - HEADACHE [None]
  - HYPERHIDROSIS [None]
  - SOMNOLENCE [None]
  - TREMOR [None]
  - VISUAL FIELD DEFECT [None]
  - YAWNING [None]
